FAERS Safety Report 4339762-0 (Version None)
Quarter: 2004Q2

REPORT INFORMATION
  Report Type: 
  Country: None (occurrence: None)
  Receive Date: 20040415
  Receipt Date: 20040415
  Transmission Date: 20050107
  Serious: Yes (Hospitalization)
  Sender: FDA-Public Use
  Company Number: None

PATIENT
  Sex: Male

DRUGS (9)
  1. GATIFLOXACIN [Suspect]
     Indication: URINARY TRACT INFECTION
     Dosage: 400 MG DAILY ORAL
     Route: 048
     Dates: start: 20040320, end: 20040326
  2. LISINOPRIL [Concomitant]
  3. SERTRALINE [Concomitant]
  4. ASPIRIN [Concomitant]
  5. GLYBURIDE [Concomitant]
  6. BACLOFEN [Concomitant]
  7. CARBAMAZEPINE [Concomitant]
  8. RANITIDINE [Concomitant]
  9. ASAP [Concomitant]

REACTIONS (2)
  - BLOOD GLUCOSE INCREASED [None]
  - LETHARGY [None]
